FAERS Safety Report 6492945-6 (Version None)
Quarter: 2009Q4

REPORT INFORMATION
  Report Type: 
  Country: None (occurrence: None)
  Receive Date: 20091214
  Receipt Date: 20091209
  Transmission Date: 20100525
  Serious: Yes (Death, Other)
  Sender: FDA-Public Use
  Company Number: PHHY2009JP54662

PATIENT
  Age: 59 Year
  Sex: Male

DRUGS (1)
  1. CYCLOSPORINE [Suspect]
     Indication: INTERSTITIAL LUNG DISEASE
     Dosage: UNK
     Dates: start: 20061201

REACTIONS (2)
  - INTERSTITIAL LUNG DISEASE [None]
  - OESOPHAGEAL CARCINOMA [None]
